FAERS Safety Report 25998827 (Version 1)
Quarter: 2025Q4

REPORT INFORMATION
  Report Type: Spontaneous
  Country: EU (occurrence: EU)
  Receive Date: 20251105
  Receipt Date: 20251105
  Transmission Date: 20260118
  Serious: Yes (Hospitalization, Other)
  Sender: ROCHE
  Company Number: None

PATIENT
  Sex: Female

DRUGS (2)
  1. TECENTRIQ [Suspect]
     Active Substance: ATEZOLIZUMAB
     Indication: Malignant neoplasm of renal pelvis
     Dosage: SUBCUTANT EVERY 3 WEEKS
     Route: 050
     Dates: start: 20241223
  2. Salmex 50 MIKROGRAM/250 MIKROGRAM/DOS [Concomitant]
     Indication: Dyspnoea
     Route: 065

REACTIONS (6)
  - Colitis microscopic [Recovering/Resolving]
  - Hyperglycaemic hyperosmolar nonketotic syndrome [Recovering/Resolving]
  - Hyperglycaemia [Recovering/Resolving]
  - Confusional state [Recovering/Resolving]
  - Acidosis [Recovering/Resolving]
  - Diarrhoea [Recovering/Resolving]

NARRATIVE: CASE EVENT DATE: 20250226
